FAERS Safety Report 16338673 (Version 2)
Quarter: 2019Q2

REPORT INFORMATION
  Report Type: Report from Study
  Country: DE (occurrence: DE)
  Receive Date: 20190521
  Receipt Date: 20190626
  Transmission Date: 20190711
  Serious: Yes (Hospitalization)
  Sender: FDA-Public Use
  Company Number: DE-AMGEN-DEUNI2019077621

PATIENT
  Age: 67 Year
  Sex: Male
  Weight: 85 kg

DRUGS (14)
  1. BISOPROLOL HEMIFUMARATE [Concomitant]
     Active Substance: BISOPROLOL FUMARATE
     Indication: HYPERTENSION
     Dosage: 6 MILLIGRAM, TID
     Route: 048
     Dates: start: 20190218
  2. FLUOROURACIL. [Suspect]
     Active Substance: FLUOROURACIL
     Dosage: 1187 MILLIGRAM
     Route: 040
     Dates: start: 20190325
  3. PANTOPRAZOL [PANTOPRAZOLE] [Concomitant]
     Active Substance: PANTOPRAZOLE
     Dosage: 40 MILLIGRAM, QD
     Route: 048
     Dates: start: 20190218
  4. ENOXAPARIN [Concomitant]
     Active Substance: ENOXAPARIN
     Indication: THROMBOSIS PROPHYLAXIS
     Dosage: 40 MILLILITER, QD
     Route: 048
     Dates: start: 20190218
  5. VALSARTAN. [Concomitant]
     Active Substance: VALSARTAN
     Indication: HYPERTENSION
     Dosage: 160 MILLIGRAM, QD
     Route: 048
     Dates: start: 20190218
  6. BETAHISTINE DIMESILATE [Concomitant]
     Indication: MENIERE^S DISEASE
     Dosage: 6 MILLIGRAM, TID
     Route: 048
     Dates: start: 20190218
  7. FOLINIC ACID [Suspect]
     Active Substance: LEUCOVORIN
     Dosage: 791 MILLIGRAM
     Route: 065
     Dates: start: 20190325
  8. FLUOROURACIL. [Suspect]
     Active Substance: FLUOROURACIL
     Indication: COLORECTAL CANCER METASTATIC
     Dosage: 1200 MILLIGRAM
     Route: 040
     Dates: start: 20190311
  9. FLUOROURACIL. [Suspect]
     Active Substance: FLUOROURACIL
     Dosage: 791 MILLIGRAM
     Route: 042
     Dates: start: 20190325
  10. OXALIPLATIN. [Suspect]
     Active Substance: OXALIPLATIN
     Dosage: 84 MILLIGRAM
     Route: 065
     Dates: start: 20190325
  11. PANITUMUMAB [Suspect]
     Active Substance: PANITUMUMAB
     Indication: COLORECTAL CANCER METASTATIC
     Dosage: 474 MILLIGRAM
     Route: 042
     Dates: start: 20190325
  12. FLUOROURACIL. [Suspect]
     Active Substance: FLUOROURACIL
     Dosage: 800 MILLIGRAM
     Route: 042
     Dates: start: 20190311
  13. OXALIPLATIN. [Suspect]
     Active Substance: OXALIPLATIN
     Indication: COLORECTAL CANCER METASTATIC
     Dosage: 85 MILLIGRAM
     Route: 065
     Dates: start: 20190311
  14. FOLINIC ACID [Suspect]
     Active Substance: LEUCOVORIN
     Indication: COLORECTAL CANCER METASTATIC
     Dosage: 800 MILLIGRAM
     Route: 065
     Dates: start: 20190311

REACTIONS (3)
  - Vomiting [Unknown]
  - Sinus tachycardia [Recovering/Resolving]
  - Dyspnoea [Recovering/Resolving]

NARRATIVE: CASE EVENT DATE: 20190424
